FAERS Safety Report 18489875 (Version 5)
Quarter: 2021Q3

REPORT INFORMATION
  Report Type: Spontaneous
  Country: US (occurrence: US)
  Receive Date: 20201111
  Receipt Date: 20210706
  Transmission Date: 20211014
  Serious: Yes (Other)
  Sender: FDA-Public Use
  Company Number: US-PFIZER INC-2020440538

PATIENT
  Age: 73 Year
  Sex: Female
  Weight: 52.61 kg

DRUGS (3)
  1. ELIQUIS [Concomitant]
     Active Substance: APIXABAN
     Dosage: 2.5 MG BID (TWICE A DAY) FOR 30 DAYS
     Route: 048
     Dates: start: 20201026
  2. LETROZOLE. [Concomitant]
     Active Substance: LETROZOLE
     Dosage: 2.5 MG DAILY FOR 90 DAYS
     Route: 048
     Dates: start: 20200127
  3. IBRANCE [Suspect]
     Active Substance: PALBOCICLIB
     Indication: BREAST CANCER STAGE IV
     Dosage: 100 MG, CYCLIC, [DAILY FOR 21 DAYS]
     Route: 048
     Dates: start: 20191230

REACTIONS (3)
  - Product dose omission issue [Unknown]
  - Visual impairment [Unknown]
  - Blood count abnormal [Unknown]
